FAERS Safety Report 4864286-1 (Version None)
Quarter: 2005Q4

REPORT INFORMATION
  Report Type: 
  Country: None (occurrence: None)
  Receive Date: 20051220
  Receipt Date: 20051220
  Transmission Date: 20060501
  Serious: Yes (Hospitalization)
  Sender: FDA-Public Use
  Company Number: None

PATIENT
  Age: 63 Year
  Sex: Male
  Weight: 136 kg

DRUGS (1)
  1. HALOPERIDOL [Suspect]
     Indication: AGITATION
     Dosage: 2MG PO TID  , 5MG IV Q4H PRN
     Route: 048
     Dates: start: 20050607, end: 20050608

REACTIONS (1)
  - TORSADE DE POINTES [None]
